FAERS Safety Report 18755229 (Version 9)
Quarter: 2022Q4

REPORT INFORMATION
  Report Type: Other
  Country: JP (occurrence: JP)
  Receive Date: 20210119
  Receipt Date: 20221124
  Transmission Date: 20230113
  Serious: Yes (Hospitalization, Other)
  Sender: FDA-Public Use
  Company Number: JP-CHUGAI-A2020055097ROCHE

PATIENT
  Age: 77 Year
  Sex: Female
  Weight: 44 kg

DRUGS (30)
  1. ATEZOLIZUMAB [Suspect]
     Active Substance: ATEZOLIZUMAB
     Indication: Lung adenocarcinoma
     Dosage: 1200 MILLIGRAM, QD
     Route: 041
     Dates: start: 20201208, end: 20201208
  2. ATEZOLIZUMAB [Suspect]
     Active Substance: ATEZOLIZUMAB
     Dosage: 1200 MILLIGRAM, QD
     Route: 041
     Dates: start: 20210104, end: 20210104
  3. ATEZOLIZUMAB [Suspect]
     Active Substance: ATEZOLIZUMAB
     Dosage: 1200 MILLIGRAM, ONCE/3WEEKS
     Route: 041
     Dates: start: 20210201
  4. ATEZOLIZUMAB [Suspect]
     Active Substance: ATEZOLIZUMAB
     Dosage: 1200 MILLIGRAM
     Route: 041
     Dates: end: 20210811
  5. BEVACIZUMAB [Suspect]
     Active Substance: BEVACIZUMAB
     Indication: Lung adenocarcinoma
     Dosage: 660MG,ONCE IN1DAY
     Route: 041
     Dates: start: 20201208, end: 20201208
  6. BEVACIZUMAB [Suspect]
     Active Substance: BEVACIZUMAB
     Dosage: 600 MILLIGRAM, ONCE/3WEEKS
     Route: 041
     Dates: start: 20210222, end: 20210628
  7. CARBOPLATIN [Suspect]
     Active Substance: CARBOPLATIN
     Indication: Lung adenocarcinoma
     Dosage: 240 MILLIGRAM, ONCE/4WEEKS
     Route: 041
     Dates: start: 20201208, end: 20210104
  8. CARBOPLATIN [Suspect]
     Active Substance: CARBOPLATIN
     Dosage: 240 MILLIGRAM, ONCE/3WEEKS
     Route: 041
     Dates: start: 20210201, end: 20210222
  9. PACLITAXEL [Suspect]
     Active Substance: PACLITAXEL
     Indication: Lung adenocarcinoma
     Dosage: 120 MILLIGRAM, ONCE/4WEEKS
     Route: 041
     Dates: start: 20201208, end: 20210104
  10. PACLITAXEL [Suspect]
     Active Substance: PACLITAXEL
     Dosage: 120 MILLIGRAM, ONCE/3WEEKS
     Route: 041
     Dates: start: 20210201, end: 20210222
  11. EMEND [Concomitant]
     Active Substance: APREPITANT
     Indication: Prophylaxis
     Dosage: 125MG,ONCE IN1DAY
     Route: 048
     Dates: start: 20201208, end: 20201208
  12. EMEND [Concomitant]
     Active Substance: APREPITANT
     Dosage: DOSE INTERVAL IS UNKNOWN
     Route: 048
     Dates: start: 20201209, end: 20201210
  13. EMEND [Concomitant]
     Active Substance: APREPITANT
     Dosage: 125MG,ONCE IN1DAY
     Route: 048
     Dates: start: 20210104, end: 20210104
  14. EMEND [Concomitant]
     Active Substance: APREPITANT
     Dosage: DOSE INTERVAL IS UNKNOWN
     Route: 048
     Dates: start: 20210105, end: 20210106
  15. DECADRON [Concomitant]
     Active Substance: DEXAMETHASONE
     Indication: Prophylaxis
     Dosage: DOSE INTERVAL IS UNKNOWN
     Route: 048
     Dates: start: 20201209, end: 20201210
  16. SENNOSIDES A AND B [Concomitant]
     Active Substance: SENNOSIDES A AND B
     Indication: Constipation
     Dosage: 24MG,ONCE IN1DAY
     Route: 048
     Dates: start: 20201209, end: 20201209
  17. SENNOSIDES A AND B [Concomitant]
     Active Substance: SENNOSIDES A AND B
     Dosage: ,1 TIMES IN
     Route: 048
     Dates: start: 20201221, end: 20201222
  18. MAGNESIUM OXIDE [Concomitant]
     Active Substance: MAGNESIUM OXIDE
     Indication: Constipation
     Dosage: ,1 TIMES IN
     Route: 048
     Dates: start: 20201209, end: 20201218
  19. MAGNESIUM OXIDE [Concomitant]
     Active Substance: MAGNESIUM OXIDE
     Dosage: DOSE INTERVAL IS UNKNOWN
     Route: 048
     Dates: start: 20201222
  20. ZOLPIDEM TARTRATE [Concomitant]
     Active Substance: ZOLPIDEM TARTRATE
     Indication: Insomnia
     Dosage: 5MG,ONCE IN1DAY
     Route: 048
     Dates: start: 20201209, end: 20201209
  21. POSTERISAN [Concomitant]
     Indication: Haemorrhoids
     Dosage: ,1 TIMES IN
     Route: 003
     Dates: start: 20201211, end: 20201218
  22. LANSOPRAZOLE [Concomitant]
     Active Substance: LANSOPRAZOLE
     Indication: Prophylaxis
     Dosage: DOSE INTERVAL IS UNKNOWN
     Route: 048
     Dates: end: 20201218
  23. LANSOPRAZOLE [Concomitant]
     Active Substance: LANSOPRAZOLE
     Dosage: DOSE INTERVAL IS UNKNOWN
     Route: 048
     Dates: start: 20210105
  24. TERRA CORTRIL (JAPAN) [Concomitant]
     Indication: Paronychia
     Dosage: DOSAGE IS UNKNOWN
     Route: 003
  25. VOALLA [Concomitant]
     Dosage: DOSAGE IS UNKNOWN
     Route: 003
  26. BISACODYL [Concomitant]
     Active Substance: BISACODYL
     Indication: Constipation
     Dosage: DOSAGE INTERVAL IS UNKNOWN
     Route: 054
     Dates: start: 20201220, end: 20210102
  27. XARELTO [Concomitant]
     Active Substance: RIVAROXABAN
     Indication: Constipation
     Dosage: DOSE INTERVAL IS UNKNOWN
     Route: 048
     Dates: start: 20201221
  28. VASOLAN [Concomitant]
     Indication: Tachycardia
     Dosage: ,ONCE IN1DAY
     Route: 065
     Dates: start: 20201222, end: 20201222
  29. BISOPROLOL [Concomitant]
     Active Substance: BISOPROLOL
     Indication: Hypertension
     Dosage: DOSE INTERVAL IS UNKNOWN
     Route: 062
     Dates: start: 20201222
  30. BELSOMRA [Concomitant]
     Active Substance: SUVOREXANT
     Indication: Insomnia
     Dosage: DOSE INTERVAL IS UNKNOWN
     Route: 048
     Dates: start: 20201227, end: 20210102

REACTIONS (8)
  - Thrombophlebitis migrans [Recovered/Resolved with Sequelae]
  - Proteinuria [Not Recovered/Not Resolved]
  - Venous thrombosis [Unknown]
  - Anaemia [Recovered/Resolved]
  - Gingivitis [Recovered/Resolved]
  - Oedema peripheral [Unknown]
  - Platelet count decreased [Recovered/Resolved]
  - Cerebral infarction [Recovered/Resolved with Sequelae]

NARRATIVE: CASE EVENT DATE: 20201209
